FAERS Safety Report 22246453 (Version 2)
Quarter: 2023Q2

REPORT INFORMATION
  Report Type: Spontaneous
  Country: US (occurrence: US)
  Receive Date: 20230424
  Receipt Date: 20230427
  Transmission Date: 20230721
  Serious: No
  Sender: FDA-Public Use
  Company Number: US-Calliditas-2023CAL00381

PATIENT
  Age: 53 Year
  Sex: Female

DRUGS (10)
  1. TARPEYO [Suspect]
     Active Substance: BUDESONIDE
     Indication: IgA nephropathy
     Dosage: 16 MG (4 MG CAPSULES) ONCE DAILY
     Route: 048
     Dates: start: 20221221
  2. CALCIUM\CHOLECALCIFEROL [Concomitant]
     Active Substance: CALCIUM\CHOLECALCIFEROL
  3. FISH OIL [Concomitant]
     Active Substance: FISH OIL
  4. VITAMIN D3 [Concomitant]
     Active Substance: CHOLECALCIFEROL
  5. NYSTATIN [Concomitant]
     Active Substance: NYSTATIN
  6. PANTOPRAZOLE [Concomitant]
     Active Substance: PANTOPRAZOLE
  7. CHLORTHALIDONE [Concomitant]
     Active Substance: CHLORTHALIDONE
  8. LOSARTAN [Concomitant]
     Active Substance: LOSARTAN
  9. HYDRALAZINE [Concomitant]
     Active Substance: HYDRALAZINE HYDROCHLORIDE
  10. CARVEDILOL [Concomitant]
     Active Substance: CARVEDILOL

REACTIONS (1)
  - Nasopharyngitis [Recovering/Resolving]

NARRATIVE: CASE EVENT DATE: 20230301
